FAERS Safety Report 8985966 (Version 1)
Quarter: 2012Q4

REPORT INFORMATION
  Report Type: 
  Country: GB (occurrence: GB)
  Receive Date: 20121226
  Receipt Date: 20121226
  Transmission Date: 20130627
  Serious: Yes (Other)
  Sender: FDA-Public Use
  Company Number: GB-ASTRAZENECA-2012SE94252

PATIENT
  Age: 35 Year
  Sex: Female

DRUGS (4)
  1. QUETIAPINE [Suspect]
     Indication: INSOMNIA
     Route: 048
     Dates: start: 2007
  2. VENLAFAXINE [Suspect]
     Indication: AFFECTIVE DISORDER
     Dates: start: 2007
  3. GABAPENTIN [Suspect]
     Indication: BACK PAIN
     Dates: start: 20120929, end: 20121010
  4. VITAMIN B6 [Suspect]
     Dates: start: 20121010, end: 20121101

REACTIONS (5)
  - Mood altered [Recovering/Resolving]
  - Mood swings [Recovering/Resolving]
  - Headache [Recovering/Resolving]
  - Menstruation delayed [Recovering/Resolving]
  - Irritability [Recovering/Resolving]
